FAERS Safety Report 19043028 (Version 1)
Quarter: 2021Q1

REPORT INFORMATION
  Report Type: Spontaneous
  Country: AE (occurrence: AE)
  Receive Date: 20210323
  Receipt Date: 20210323
  Transmission Date: 20210420
  Serious: Yes (Other)
  Sender: FDA-Public Use
  Company Number: AE-ACCORD-219786

PATIENT
  Age: 14 Year
  Sex: Female
  Weight: 69 kg

DRUGS (7)
  1. ETOPOSIDE. [Suspect]
     Active Substance: ETOPOSIDE
     Indication: ACUTE MYELOID LEUKAEMIA
     Dosage: FIRST INDUCTION, INTENSIFICATION
  2. BUSULFAN. [Suspect]
     Active Substance: BUSULFAN
     Indication: BONE MARROW CONDITIONING REGIMEN
  3. MITOXANTRONE [Suspect]
     Active Substance: MITOXANTRONE HYDROCHLORIDE
     Indication: ACUTE MYELOID LEUKAEMIA
     Dosage: SECOND INDUCTION
  4. DAUNORUBICIN [Suspect]
     Active Substance: DAUNORUBICIN
     Indication: ACUTE MYELOID LEUKAEMIA
     Dosage: FIRST INDUCTION
  5. CYTARABINE/CYTARABINE HYDROCHLORIDE/CYTARABINE OCFOSFATE [Suspect]
     Active Substance: CYTARABINE
     Indication: ACUTE MYELOID LEUKAEMIA
     Dosage: FIRST INDUCTION, SECOND INDUCTION, CONSOLIDATION AND INTENSIFICATION
  6. FLUDARABINE [Suspect]
     Active Substance: FLUDARABINE PHOSPHATE
     Indication: BONE MARROW CONDITIONING REGIMEN
  7. IDARUBICIN [Suspect]
     Active Substance: IDARUBICIN
     Indication: ACUTE MYELOID LEUKAEMIA
     Dosage: CONSOLIDATION

REACTIONS (7)
  - Ovarian atrophy [Recovered/Resolved]
  - Ovarian failure [Recovered/Resolved]
  - Amenorrhoea [Recovered/Resolved]
  - Primary hypogonadism [Recovered/Resolved]
  - Delayed puberty [Recovered/Resolved]
  - Oestrogen deficiency [Recovered/Resolved]
  - Ovarian hypoplasia [Recovered/Resolved]
